FAERS Safety Report 7207871-4 (Version None)
Quarter: 2010Q4

REPORT INFORMATION
  Report Type: 
  Country: None (occurrence: None)
  Receive Date: 20101221
  Receipt Date: 20101209
  Transmission Date: 20110411
  Serious: Yes (Other)
  Sender: FDA-Public Use
  Company Number: 2010AP002626

PATIENT
  Age: 48 Year
  Sex: Female

DRUGS (6)
  1. RAMIPRIL [Suspect]
     Dates: start: 20101118, end: 20101201
  2. RAMIPRIL [Suspect]
     Dates: start: 20101118
  3. RAMIPRIL [Suspect]
     Dates: start: 20101206
  4. LEVOTHYROXINE SODIUM [Concomitant]
  5. PARAFFIN, LIQUID (PARAFFIN, LIQUID) [Concomitant]
  6. PARAFFIN SOFT (PARAFFIN SOFT) [Concomitant]

REACTIONS (3)
  - DRY THROAT [None]
  - PRURITUS [None]
  - THIRST [None]
